FAERS Safety Report 8984035 (Version 1)
Quarter: 2012Q4

REPORT INFORMATION
  Report Type: Spontaneous
  Country: US (occurrence: None)
  Receive Date: 20121214
  Receipt Date: 20121214
  Transmission Date: 20130627
  Serious: Yes (Hospitalization)
  Sender: FDA-Public Use
  Company Number: 138833

PATIENT
  Age: 70 Year
  Sex: Male
  Weight: 68 kg

DRUGS (1)
  1. LEUCOVORIN CALCIUM FOR INJ. 50MG-BEDFORD LABS, INC. [Suspect]
     Indication: COLORECTAL CANCER METASTATIC
     Dosage: day 1 every 14 days
     Route: 042
     Dates: start: 20120404

REACTIONS (4)
  - Bacteraemia [None]
  - Sepsis [None]
  - Gastrointestinal toxicity [None]
  - Escherichia test positive [None]
